FAERS Safety Report 7805503-5 (Version None)
Quarter: 2011Q4

REPORT INFORMATION
  Report Type: 
  Country: None (occurrence: None)
  Receive Date: 20111010
  Receipt Date: 20111003
  Transmission Date: 20120403
  Serious: Yes (Disabling)
  Sender: FDA-Public Use
  Company Number: PHEH2011US04311

PATIENT
  Sex: Female

DRUGS (2)
  1. DEXLANSOPRAZOLE [Concomitant]
     Dosage: UNK UKN, UNK
     Route: 048
  2. GILENYA [Suspect]
     Indication: RELAPSING-REMITTING MULTIPLE SCLEROSIS
     Dosage: 0.5 MG, QD
     Route: 048
     Dates: start: 20110831, end: 20110913

REACTIONS (4)
  - PALPITATIONS [None]
  - DIZZINESS [None]
  - ASTHENIA [None]
  - COUGH [None]
